FAERS Safety Report 7190340-8 (Version None)
Quarter: 2010Q4

REPORT INFORMATION
  Report Type: 
  Country: None (occurrence: None)
  Receive Date: 20101221
  Receipt Date: 20101221
  Transmission Date: 20110411
  Serious: Yes (Other)
  Sender: FDA-Public Use
  Company Number: None

PATIENT
  Age: 2 Year
  Sex: Female

DRUGS (1)
  1. CHLORAL HYDRATE [Suspect]
     Dosage: 1000 MG. FOR 2 YR. OLDS

REACTIONS (5)
  - ABASIA [None]
  - LOSS OF CONSCIOUSNESS [None]
  - SCREAMING [None]
  - TOOTH FRACTURE [None]
  - TREMOR [None]
